FAERS Safety Report 5197917-X (Version None)
Quarter: 2007Q1

REPORT INFORMATION
  Report Type: 
  Country: None (occurrence: None)
  Receive Date: 20070104
  Receipt Date: 20070102
  Transmission Date: 20070707
  Serious: Yes (Hospitalization)
  Sender: FDA-Public Use
  Company Number: US-ELI_LILLY_AND_COMPANY-US200610004072

PATIENT
  Age: 39 Year
  Sex: Male
  Weight: 92.97 kg

DRUGS (4)
  1. RISPERIDONE [Concomitant]
     Dates: start: 20000101
  2. PAROXETINE HCL [Concomitant]
     Dates: start: 20000101
  3. SERTRALINE [Concomitant]
     Dates: start: 20010101, end: 20030101
  4. ZYPREXA [Suspect]
     Dates: start: 20000701, end: 20010201

REACTIONS (5)
  - BLOOD TRIGLYCERIDES INCREASED [None]
  - CARDIAC DISORDER [None]
  - CONVULSION [None]
  - DIABETES MELLITUS [None]
  - METABOLIC DISORDER [None]
